FAERS Safety Report 16695913 (Version 1)
Quarter: 2019Q3

REPORT INFORMATION
  Report Type: Other
  Country: IT (occurrence: IT)
  Receive Date: 20190813
  Receipt Date: 20190813
  Transmission Date: 20191004
  Serious: Yes (Hospitalization)
  Sender: FDA-Public Use
  Company Number: IT-MACLEODS PHARMACEUTICALS US LTD-MAC2019022523

PATIENT

DRUGS (7)
  1. AMLODIPINE MALEATE [Concomitant]
     Active Substance: AMLODIPINE MALEATE
     Indication: HYPERTENSION
     Dosage: UNK, TABLET
     Route: 048
  2. RIVASTIGMINE. [Concomitant]
     Active Substance: RIVASTIGMINE
     Indication: COGNITIVE DISORDER
     Dosage: UNK
     Route: 065
  3. CLOPIDOGREL [Suspect]
     Active Substance: CLOPIDOGREL BISULFATE
     Indication: THROMBOSIS PROPHYLAXIS
     Dosage: UNK
     Route: 048
     Dates: start: 20190725, end: 20190725
  4. CREON [Concomitant]
     Active Substance: PANCRELIPASE AMYLASE\PANCRELIPASE LIPASE\PANCRELIPASE PROTEASE
     Indication: PANCREATITIS
     Dosage: UNK
     Route: 048
  5. DEPONIT [Concomitant]
     Active Substance: NITROGLYCERIN
     Indication: VASODILATATION
     Dosage: UNK
     Route: 062
  6. PROPAFENONE. [Concomitant]
     Active Substance: PROPAFENONE
     Indication: PRODUCT USED FOR UNKNOWN INDICATION
     Dosage: UNK, TABLET
     Route: 048
  7. RANITIDINE. [Concomitant]
     Active Substance: RANITIDINE
     Indication: PROPHYLAXIS AGAINST GASTROINTESTINAL ULCER
     Dosage: UNK, TABLET
     Route: 048

REACTIONS (2)
  - Rectal haemorrhage [Recovering/Resolving]
  - Anaemia [Recovering/Resolving]

NARRATIVE: CASE EVENT DATE: 20190725
